FAERS Safety Report 10612671 (Version 2)
Quarter: 2015Q2

REPORT INFORMATION
  Report Type: Report from Study
  Country: US (occurrence: US)
  Receive Date: 20141127
  Receipt Date: 20150423
  Transmission Date: 20150821
  Serious: Yes (Hospitalization, Other)
  Sender: FDA-Public Use
  Company Number: US-AMGEN-USASL2014090633

PATIENT
  Age: 85 Year
  Sex: Female

DRUGS (4)
  1. PROLIA [Suspect]
     Active Substance: DENOSUMAB
     Indication: BONE DISORDER
     Dosage: UNK
     Route: 065
  2. CALCIUM [Concomitant]
     Active Substance: CALCIUM
  3. VITAMIN D3 [Concomitant]
     Active Substance: CHOLECALCIFEROL
     Dosage: 2000 UNK, UNK
  4. VITAMIN D                          /00107901/ [Concomitant]
     Active Substance: ERGOCALCIFEROL

REACTIONS (11)
  - Feeling abnormal [Unknown]
  - Fatigue [Unknown]
  - Pain in jaw [Unknown]
  - Memory impairment [Unknown]
  - Gait disturbance [Unknown]
  - Arthralgia [Unknown]
  - Walking aid user [Unknown]
  - Wheelchair user [Unknown]
  - Pain in extremity [Unknown]
  - Myocardial infarction [Unknown]
  - Toothache [Unknown]

NARRATIVE: CASE EVENT DATE: 201409
